FAERS Safety Report 9522244 (Version 4)
Quarter: 2013Q4

REPORT INFORMATION
  Report Type: Spontaneous
  Country: US (occurrence: US)
  Receive Date: 20130913
  Receipt Date: 20131104
  Transmission Date: 20140711
  Serious: No
  Sender: FDA-Public Use
  Company Number: US-PFIZER INC-2013262314

PATIENT
  Age: 60 Year
  Sex: Female
  Weight: 68.03 kg

DRUGS (13)
  1. PREMARIN [Suspect]
     Indication: POSTOPERATIVE CARE
     Dosage: 0.625 MG, 1X/DAY
     Route: 048
     Dates: start: 2001
  2. PREMARIN [Suspect]
     Dosage: 0.9 MG, UNK
     Route: 048
  3. PREMARIN [Suspect]
     Dosage: 1.25 MG, 1X/DAY
     Route: 048
  4. PREMARIN [Suspect]
     Dosage: 1.25 MG, ALTERNATE DAY
     Route: 048
     Dates: start: 2013
  5. PRAVACHOL [Concomitant]
     Indication: BLOOD CHOLESTEROL INCREASED
     Dosage: 40 MG, 1X/DAY
  6. XANAX [Concomitant]
     Indication: ANXIETY
     Dosage: 1 MG, 3X/DAY
  7. PROZAC [Concomitant]
     Indication: DEPRESSION
     Dosage: 40 MG IN THE MORNING AND 20 MG AT NIGHT, 2X/DAY
  8. PROZAC [Concomitant]
     Indication: ANXIETY
  9. PROZAC [Concomitant]
     Indication: HEADACHE
  10. WELLBUTRIN [Concomitant]
     Indication: ANXIETY
     Dosage: 150 MG, 2X/DAY
  11. PRIMIDONE [Concomitant]
     Indication: CONVULSION
     Dosage: 125 MG, 2X/DAY
  12. TRAZODONE [Concomitant]
     Dosage: 50 MG, 1X/DAY
  13. ATENOLOL [Concomitant]
     Indication: MITRAL VALVE PROLAPSE
     Dosage: 50 MG, 1X/DAY

REACTIONS (1)
  - Nausea [Recovered/Resolved]
